FAERS Safety Report 18341543 (Version 1)
Quarter: 2020Q4

REPORT INFORMATION
  Report Type: Report from Study
  Country: GB (occurrence: GB)
  Receive Date: 20201004
  Receipt Date: 20201004
  Transmission Date: 20210113
  Serious: Yes (Other)
  Sender: FDA-Public Use
  Company Number: NVSC2020GB267221

PATIENT
  Age: 45 Year
  Sex: Female

DRUGS (1)
  1. EZETIMIBE. [Suspect]
     Active Substance: EZETIMIBE
     Indication: PRODUCT USED FOR UNKNOWN INDICATION
     Dosage: UNK
     Route: 065

REACTIONS (4)
  - Angina unstable [Unknown]
  - Coronary artery disease [Unknown]
  - Drug ineffective [Unknown]
  - Myocardial infarction [Unknown]
